FAERS Safety Report 7963755-5 (Version None)
Quarter: 2011Q4

REPORT INFORMATION
  Report Type: 
  Country: None (occurrence: None)
  Receive Date: 20111208
  Receipt Date: 20111101
  Transmission Date: 20120403
  Serious: No
  Sender: FDA-Public Use
  Company Number: US-BAYER-2011-106982

PATIENT

DRUGS (3)
  1. BENGAY [HYDROXYTOLUIC ACID,MENTHOL] [Concomitant]
     Dosage: MOST OF A TUBE
     Route: 062
  2. ALEVE (CAPLET) [Suspect]
     Indication: PAIN IN EXTREMITY
     Dosage: 1000 MG TABLET IN ONE DAY
     Route: 048
     Dates: start: 20111031
  3. IBUPROFEN [Concomitant]
     Dosage: 2500 MG TABLET IN ONE DAY
     Route: 048

REACTIONS (1)
  - PAIN IN EXTREMITY [None]
